FAERS Safety Report 7465391-6 (Version None)
Quarter: 2011Q2

REPORT INFORMATION
  Report Type: 
  Country: None (occurrence: None)
  Receive Date: 20110509
  Receipt Date: 20110504
  Transmission Date: 20111010
  Serious: Yes (Other)
  Sender: FDA-Public Use
  Company Number: AU-ABBOTT-11P-008-0723507-00

PATIENT
  Age: 49 Year
  Sex: Male
  Weight: 73 kg

DRUGS (7)
  1. ISENTRESS [Interacting]
     Indication: HIV INFECTION
     Route: 048
  2. IRBESARTAN [Interacting]
     Indication: PRODUCT USED FOR UNKNOWN INDICATION
  3. INTELENCE [Interacting]
     Indication: HIV INFECTION
     Route: 048
     Dates: start: 20080925, end: 20081014
  4. DARUNAVIR ETHANOLATE [Interacting]
     Indication: HIV INFECTION
     Route: 048
     Dates: start: 20080925, end: 20081014
  5. LERCANIDIPINE [Interacting]
     Indication: PRODUCT USED FOR UNKNOWN INDICATION
  6. INDOMETHACIN [Interacting]
     Indication: PRODUCT USED FOR UNKNOWN INDICATION
  7. RITONAVIR [Suspect]
     Indication: HIV INFECTION
     Route: 048

REACTIONS (4)
  - NEPHROPATHY [None]
  - RENAL IMPAIRMENT [None]
  - NEPHROPATHY TOXIC [None]
  - DRUG INTERACTION [None]
